FAERS Safety Report 7889400-5 (Version None)
Quarter: 2011Q4

REPORT INFORMATION
  Report Type: 
  Country: None (occurrence: None)
  Receive Date: 20111103
  Receipt Date: 20111031
  Transmission Date: 20120403
  Serious: No
  Sender: FDA-Public Use
  Company Number: US-BAYER-2011-106216

PATIENT
  Sex: Female

DRUGS (1)
  1. GADAVIST [Suspect]
     Dosage: 10 ML, ONCE

REACTIONS (2)
  - RETCHING [None]
  - NAUSEA [None]
